FAERS Safety Report 9466407 (Version 2)
Quarter: 2013Q3

REPORT INFORMATION
  Report Type: Report from Study
  Country: JP (occurrence: JP)
  Receive Date: 20130820
  Receipt Date: 20130822
  Transmission Date: 20140515
  Serious: Yes (Hospitalization)
  Sender: FDA-Public Use
  Company Number: JP-ROCHE-1261163

PATIENT
  Age: 53 Year
  Sex: Female
  Weight: 58.8 kg

DRUGS (7)
  1. VEMURAFENIB [Suspect]
     Indication: METASTATIC MALIGNANT MELANOMA
     Route: 048
     Dates: start: 20130605, end: 20130730
  2. VEMURAFENIB [Suspect]
     Indication: METASTATIC MALIGNANT MELANOMA
     Dosage: DOSE REDUCED
     Route: 048
     Dates: start: 20130815
  3. LOXOPROFEN [Suspect]
     Indication: CANCER PAIN
     Route: 048
  4. MORPHINE SULFATE [Suspect]
     Indication: CANCER PAIN
     Route: 048
     Dates: end: 20130731
  5. PARACETAMOL [Suspect]
     Indication: CANCER PAIN
     Route: 048
     Dates: end: 20130802
  6. TEPRENONE [Suspect]
     Indication: PROPHYLAXIS AGAINST GASTROINTESTINAL ULCER
     Route: 048
     Dates: start: 20130608, end: 20130731
  7. FAMOTIDINE [Suspect]
     Indication: ABDOMINAL PAIN
     Route: 048
     Dates: start: 20130731, end: 20130731

REACTIONS (1)
  - Hepatic function abnormal [Recovering/Resolving]
